FAERS Safety Report 12900722 (Version 1)
Quarter: 2016Q4

REPORT INFORMATION
  Report Type: Spontaneous
  Country: FR (occurrence: FR)
  Receive Date: 20161101
  Receipt Date: 20161101
  Transmission Date: 20170207
  Serious: Yes (Hospitalization, Other)
  Sender: FDA-Public Use
  Company Number: FR-GILEAD-2016-0239117

PATIENT
  Age: 75 Year
  Sex: Male

DRUGS (1)
  1. ZYDELIG [Suspect]
     Active Substance: IDELALISIB
     Indication: PRODUCT USED FOR UNKNOWN INDICATION
     Dosage: UNK
     Route: 065
     Dates: end: 20160920

REACTIONS (3)
  - Diarrhoea [Unknown]
  - Diarrhoea haemorrhagic [Unknown]
  - Colitis [Unknown]

NARRATIVE: CASE EVENT DATE: 20160912
